FAERS Safety Report 4933227-0 (Version None)
Quarter: 2006Q1

REPORT INFORMATION
  Report Type: 
  Country: None (occurrence: None)
  Receive Date: 20060306
  Receipt Date: 20050829
  Transmission Date: 20060701
  Serious: Yes (Death, Hospitalization)
  Sender: FDA-Public Use
  Company Number: US-MERCK-0508USA05084

PATIENT
  Age: 65 Year
  Sex: Female
  Weight: 64 kg

DRUGS (2)
  1. VIOXX [Suspect]
     Indication: ARTHRITIS
     Route: 048
     Dates: start: 19991012, end: 20000805
  2. ANACIN [Concomitant]
     Route: 065

REACTIONS (3)
  - BREAST CYST [None]
  - CEREBROVASCULAR ACCIDENT [None]
  - ISCHAEMIC CEREBRAL INFARCTION [None]
